FAERS Safety Report 8276106-6 (Version None)
Quarter: 2012Q2

REPORT INFORMATION
  Report Type: 
  Country: None (occurrence: None)
  Receive Date: 20120406
  Receipt Date: 20120328
  Transmission Date: 20120825
  Serious: Yes (Other)
  Sender: FDA-Public Use
  Company Number: 2012SP008033

PATIENT
  Sex: Female

DRUGS (6)
  1. TELAPREVIR [Suspect]
     Indication: HEPATITIS C
     Dates: start: 20120201
  2. PEG-INTRON [Suspect]
     Indication: HEPATITIS C
     Dates: start: 20020101, end: 20020630
  3. PEG-INTRON [Suspect]
     Indication: HEPATITIS C
     Dates: start: 20120201
  4. RIBAVIRIN [Suspect]
     Indication: HEPATITIS C
     Dates: start: 20020101, end: 20020630
  5. RIBAVIRIN [Suspect]
     Indication: HEPATITIS C
     Dates: start: 20120201
  6. PAIN RELIEVER [Concomitant]

REACTIONS (14)
  - WHITE BLOOD CELL COUNT [None]
  - FATIGUE [None]
  - INJECTION SITE HAEMATOMA [None]
  - DEHYDRATION [None]
  - WEIGHT DECREASED [None]
  - ALOPECIA [None]
  - CONSTIPATION [None]
  - HERPES ZOSTER [None]
  - HYPOPHAGIA [None]
  - ANAEMIA [None]
  - BLOOD GLUCOSE DECREASED [None]
  - NAUSEA [None]
  - RED BLOOD CELL COUNT DECREASED [None]
  - BRONCHITIS [None]
